FAERS Safety Report 14930769 (Version 2)
Quarter: 2018Q4

REPORT INFORMATION
  Report Type: Spontaneous
  Country: FR (occurrence: FR)
  Receive Date: 20180523
  Receipt Date: 20181123
  Transmission Date: 20190204
  Serious: Yes (Other)
  Sender: FDA-Public Use
  Company Number: FR-MERCK KGAA-2048346

PATIENT
  Age: 57 Year
  Sex: Female
  Weight: 54 kg

DRUGS (1)
  1. EUTHYROX [Suspect]
     Active Substance: LEVOTHYROXINE SODIUM
     Indication: THYROID DISORDER
     Route: 048

REACTIONS (16)
  - Irritability [None]
  - Muscle spasms [Not Recovered/Not Resolved]
  - Onychoclasis [None]
  - Dizziness [Not Recovered/Not Resolved]
  - Psychiatric symptom [None]
  - Alopecia [Recovered/Resolved]
  - Fatigue [None]
  - Major depression [None]
  - Weight increased [Not Recovered/Not Resolved]
  - Blood thyroid stimulating hormone increased [None]
  - Apathy [None]
  - Insomnia [None]
  - Lethargy [None]
  - Vitamin D decreased [None]
  - Asthenia [Recovered/Resolved]
  - Social avoidant behaviour [None]

NARRATIVE: CASE EVENT DATE: 201703
